FAERS Safety Report 14974120 (Version 3)
Quarter: 2018Q2

REPORT INFORMATION
  Report Type: Spontaneous
  Country: GB (occurrence: GB)
  Receive Date: 20180605
  Receipt Date: 20180625
  Transmission Date: 20180711
  Serious: Yes (Other)
  Sender: FDA-Public Use
  Company Number: GB-VERICEL CORPORATION-VCEL-2018-000245

PATIENT

DRUGS (1)
  1. CARTICEL [Suspect]
     Active Substance: AUTOLOGOUS CULTURED CHONDROCYTES
     Indication: CARTILAGE INJURY
     Dosage: UNK

REACTIONS (1)
  - Transplant failure [Unknown]
